FAERS Safety Report 5867588-5 (Version None)
Quarter: 2008Q3

REPORT INFORMATION
  Report Type: 
  Country: None (occurrence: None)
  Receive Date: 20080902
  Receipt Date: 20071127
  Transmission Date: 20090109
  Serious: No
  Sender: FDA-Public Use
  Company Number: US-ABBOTT-07P-163-0426885-00

PATIENT
  Age: 34 Year
  Sex: Female
  Weight: 47.67 kg

DRUGS (2)
  1. DEPAKOTE ER [Suspect]
     Indication: BIPOLAR DISORDER
     Route: 048
     Dates: start: 19990101, end: 20000101
  2. DEPAKOTE ER [Suspect]
     Indication: BIPOLAR DISORDER
     Route: 048
     Dates: start: 20070601

REACTIONS (3)
  - CONSTIPATION [None]
  - DIARRHOEA [None]
  - FAECAL INCONTINENCE [None]
